FAERS Safety Report 10533319 (Version 2)
Quarter: 2014Q4

REPORT INFORMATION
  Report Type: Spontaneous
  Country: US (occurrence: US)
  Receive Date: 20141022
  Receipt Date: 20141022
  Transmission Date: 20150529
  Serious: No
  Sender: FDA-Public Use
  Company Number: US-ENDO PHARMACEUTICALS INC.-CARI20130015

PATIENT
  Sex: Female

DRUGS (1)
  1. CARISOPRODOL TABLETS 350MG [Suspect]
     Active Substance: CARISOPRODOL
     Indication: MUSCLE SPASMS
     Route: 048
     Dates: start: 2012

REACTIONS (9)
  - Paraesthesia [Recovered/Resolved]
  - Eye pain [Recovered/Resolved]
  - Pain [Recovered/Resolved]
  - Hypoaesthesia [Recovered/Resolved]
  - Acidosis [Recovered/Resolved]
  - Dysgeusia [Recovered/Resolved]
  - Rhinalgia [Recovered/Resolved]
  - Headache [Recovered/Resolved]
  - Excessive eye blinking [Recovered/Resolved]

NARRATIVE: CASE EVENT DATE: 20131201
